FAERS Safety Report 5144958-4 (Version None)
Quarter: 2006Q4

REPORT INFORMATION
  Report Type: 
  Country: None (occurrence: None)
  Receive Date: 20061107
  Receipt Date: 20060921
  Transmission Date: 20070319
  Serious: Yes (Hospitalization, Other)
  Sender: FDA-Public Use
  Company Number: US-AVENTIS-200618012US

PATIENT
  Sex: Male

DRUGS (16)
  1. LANTUS [Suspect]
     Indication: DIABETES MELLITUS NON-INSULIN-DEPENDENT
     Dates: start: 20060801
  2. LANTUS [Suspect]
     Dates: start: 20060901
  3. OPTICLIK (INSULIN INJECTION PEN) [Suspect]
     Dosage: DOSE: UNKNOWN
     Dates: start: 20060801
  4. APIDRA [Suspect]
     Dosage: DOSE: UNKNOWN
  5. OPTICLIK (INSULIN INJECTION PEN) [Suspect]
     Indication: DIABETES MELLITUS NON-INSULIN-DEPENDENT
     Dosage: DOSE: UNK
  6. ZIAGEN [Concomitant]
     Dosage: DOSE: UNKNOWN
  7. LEXAPRO [Concomitant]
     Dosage: DOSE: UNKNOWN
  8. LAMICTAL [Concomitant]
     Dosage: DOSE: UNKNOWN
  9. DIAZEPAM [Concomitant]
     Dosage: DOSE: UNKNOWN
  10. LOMOTIL                            /00034001/ [Concomitant]
     Dosage: DOSE: UNKNOWN
  11. MARINOL [Concomitant]
     Dosage: DOSE: UNKNOWN
  12. PHENERGAN [Concomitant]
     Dosage: DOSE: UNKNOWN
  13. INDERAL                            /00030001/ [Concomitant]
     Dosage: DOSE: UNKNOWN
  14. PREVACID [Concomitant]
     Dosage: DOSE: UNKNOWN
  15. AMBIEN [Concomitant]
     Dosage: DOSE: UNKNOWN
  16. OXANDRIN [Concomitant]
     Dosage: DOSE: UNKNOWN

REACTIONS (7)
  - CONFUSIONAL STATE [None]
  - DEVICE FAILURE [None]
  - DIABETIC COMA [None]
  - HYPERGLYCAEMIA [None]
  - PHARMACEUTICAL PRODUCT COMPLAINT [None]
  - SOMNOLENCE [None]
  - THERAPY CESSATION [None]
